FAERS Safety Report 14577694 (Version 2)
Quarter: 2018Q2

REPORT INFORMATION
  Report Type: Spontaneous
  Country: LT (occurrence: LT)
  Receive Date: 20180227
  Receipt Date: 20180403
  Transmission Date: 20180711
  Serious: Yes (Death, Life-Threatening, Other)
  Sender: FDA-Public Use
  Company Number: LT-PFIZER INC-2018080264

PATIENT
  Age: 62 Year
  Sex: Male
  Weight: 90 kg

DRUGS (1)
  1. ZYVOXID [Suspect]
     Active Substance: LINEZOLID
     Indication: ENTEROCOCCAL INFECTION
     Dosage: 1200 MG 1X/DAY
     Route: 042
     Dates: start: 20180124, end: 20180126

REACTIONS (4)
  - Cardiac arrest [Unknown]
  - Bradycardia [Unknown]
  - Hypersensitivity [Fatal]
  - Dermatitis allergic [Fatal]

NARRATIVE: CASE EVENT DATE: 20180124
